FAERS Safety Report 7650778-9 (Version None)
Quarter: 2011Q3

REPORT INFORMATION
  Report Type: 
  Country: None (occurrence: None)
  Receive Date: 20110802
  Receipt Date: 20110727
  Transmission Date: 20111222
  Serious: Yes (Death, Hospitalization)
  Sender: FDA-Public Use
  Company Number: FR-MERCK-1107FRA00138

PATIENT
  Age: 36 Year
  Sex: Male

DRUGS (3)
  1. VORICONAZOLE [Concomitant]
     Indication: FUNGAL INFECTION
     Route: 051
     Dates: start: 20090601, end: 20090601
  2. CANCIDAS [Suspect]
     Route: 041
     Dates: start: 20090601, end: 20090601
  3. CANCIDAS [Suspect]
     Indication: SYSTEMIC MYCOSIS
     Route: 041
     Dates: start: 20090601, end: 20090601

REACTIONS (2)
  - DRUG INEFFECTIVE [None]
  - ORGAN FAILURE [None]
